FAERS Safety Report 25670660 (Version 2)
Quarter: 2025Q3

REPORT INFORMATION
  Report Type: Spontaneous
  Country: GB (occurrence: GB)
  Receive Date: 20250812
  Receipt Date: 20250820
  Transmission Date: 20251021
  Serious: Yes (Hospitalization, Other)
  Sender: TEVA
  Company Number: GB-TEVA-VS-3360656

PATIENT
  Age: 40 Year
  Sex: Female

DRUGS (5)
  1. PREDNISOLONE [Suspect]
     Active Substance: PREDNISOLONE
     Indication: Retinal vasculitis
     Route: 065
  2. PREDNISOLONE [Suspect]
     Active Substance: PREDNISOLONE
     Indication: Retinal vasculitis
     Route: 048
     Dates: end: 201703
  3. PREDNISOLONE [Suspect]
     Active Substance: PREDNISOLONE
     Indication: Retinal vasculitis
     Route: 048
  4. PREDNISOLONE [Suspect]
     Active Substance: PREDNISOLONE
     Indication: Retinal vasculitis
     Route: 048
     Dates: start: 201705
  5. TACROLIMUS [Suspect]
     Active Substance: TACROLIMUS
     Indication: Ocular sarcoidosis
     Route: 048
     Dates: end: 2014

REACTIONS (5)
  - Glaucoma [Recovering/Resolving]
  - Pelvic abscess [Recovered/Resolved]
  - Mycobacterium avium complex infection [Recovered/Resolved]
  - Abscess [Recovered/Resolved]
  - Abscess limb [Recovered/Resolved]
